FAERS Safety Report 12373089 (Version 1)
Quarter: 2016Q2

REPORT INFORMATION
  Report Type: Report from Study
  Country: US (occurrence: US)
  Receive Date: 20160516
  Receipt Date: 20160516
  Transmission Date: 20160815
  Serious: Yes (Hospitalization)
  Sender: FDA-Public Use
  Company Number: US-MALLINCKRODT-T201505090

PATIENT
  Age: 50 Year
  Sex: Female

DRUGS (1)
  1. REPOSITORY CORTICOTROPIN INJECTION [Suspect]
     Active Substance: CORTICOTROPIN
     Indication: SARCOIDOSIS
     Dosage: 40U EVERY OTHER DAY
     Route: 058
     Dates: start: 20151020, end: 20151125

REACTIONS (8)
  - Weight increased [Not Recovered/Not Resolved]
  - Laryngitis [Not Recovered/Not Resolved]
  - Cardiac failure congestive [Not Recovered/Not Resolved]
  - Injection site haemorrhage [Not Recovered/Not Resolved]
  - Abdominal pain upper [Not Recovered/Not Resolved]
  - Influenza [Not Recovered/Not Resolved]
  - Muscle spasms [Not Recovered/Not Resolved]
  - Therapy cessation [Not Recovered/Not Resolved]

NARRATIVE: CASE EVENT DATE: 20151028
